FAERS Safety Report 6871345-0 (Version None)
Quarter: 2010Q3

REPORT INFORMATION
  Report Type: 
  Country: None (occurrence: None)
  Receive Date: 20100723
  Receipt Date: 20100712
  Transmission Date: 20110219
  Serious: Yes (Hospitalization, Other)
  Sender: FDA-Public Use
  Company Number: US-PFIZER INC-2009300350

PATIENT
  Sex: Female

DRUGS (2)
  1. CHANTIX [Suspect]
     Indication: SMOKING CESSATION THERAPY
     Dosage: 1 MG, UNK
     Route: 048
     Dates: start: 20090501, end: 20090601
  2. PENICILLIN NOS [Concomitant]
     Indication: INFECTION
     Dosage: UNK
     Dates: start: 20040101, end: 20100101

REACTIONS (8)
  - ACUTE RESPIRATORY FAILURE [None]
  - ANXIETY [None]
  - DEPRESSION [None]
  - INTENTIONAL OVERDOSE [None]
  - MENTAL DISORDER [None]
  - PARANOIA [None]
  - SLEEP DISORDER [None]
  - SUICIDE ATTEMPT [None]
